FAERS Safety Report 8844665 (Version 1)
Quarter: 2012Q4

REPORT INFORMATION
  Report Type: Spontaneous
  Country: US (occurrence: None)
  Receive Date: 20121016
  Receipt Date: 20121016
  Transmission Date: 20130627
  Serious: No
  Sender: FDA-Public Use
  Company Number: None

PATIENT
  Age: 86 Year
  Sex: Female
  Weight: 81.8 kg

DRUGS (12)
  1. COUMADIN [Suspect]
     Indication: ATRIAL FIBRILLATION
     Dosage: CHRONIC,
1.5 MG  MWF/TTHSS
     Route: 048
  2. PRILOSEC [Concomitant]
  3. LASIX [Concomitant]
  4. POTASSIUM [Concomitant]
  5. VIT B12 [Concomitant]
  6. VIT D [Concomitant]
  7. RISPERDAL [Concomitant]
  8. METOPROLOL [Concomitant]
  9. CARAFATE [Concomitant]
  10. REMERON [Concomitant]
  11. LOPERPMIDE [Concomitant]
  12. ZOFRAN [Concomitant]

REACTIONS (4)
  - Haematocrit decreased [None]
  - International normalised ratio increased [None]
  - Activated partial thromboplastin time prolonged [None]
  - Upper gastrointestinal haemorrhage [None]
